FAERS Safety Report 7138508-0 (Version None)
Quarter: 2010Q4

REPORT INFORMATION
  Report Type: 
  Country: None (occurrence: None)
  Receive Date: 20101201
  Receipt Date: 20101201
  Transmission Date: 20110411
  Serious: Yes (Hospitalization)
  Sender: FDA-Public Use
  Company Number: None

PATIENT
  Age: 82 Year
  Sex: Male

DRUGS (14)
  1. LYRICA [Suspect]
     Indication: NEURALGIA
     Dosage: 50 MG THREE TIMES DAILY PO
     Route: 048
     Dates: start: 20090604, end: 20100830
  2. AMITIZA [Concomitant]
  3. FLEXERIL [Concomitant]
  4. FUROSEMIDE [Concomitant]
  5. LISINOPRIL [Concomitant]
  6. METFORMIN [Concomitant]
  7. POTASSIUM CHLORIDE [Concomitant]
  8. ZOCOR [Concomitant]
  9. TERAZOSIN HCL [Concomitant]
  10. COUMADIN [Concomitant]
  11. LORTAB [Concomitant]
  12. COMBIVENT [Concomitant]
  13. CYANOCOBALAMIN [Concomitant]
  14. SERTRALINE HYDROCHLORIDE [Concomitant]

REACTIONS (5)
  - DEPRESSION [None]
  - DISEASE PROGRESSION [None]
  - PARKINSON'S DISEASE [None]
  - SUICIDAL IDEATION [None]
  - THERAPEUTIC RESPONSE DECREASED [None]
